FAERS Safety Report 9466087 (Version 1)
Quarter: 2013Q3

REPORT INFORMATION
  Report Type: Report from Study
  Country: GB (occurrence: GB)
  Receive Date: 20130820
  Receipt Date: 20130820
  Transmission Date: 20140515
  Serious: Yes (Hospitalization)
  Sender: FDA-Public Use
  Company Number: GB-ROCHE-1262942

PATIENT
  Age: 61 Year
  Sex: Female

DRUGS (2)
  1. RITUXIMAB [Suspect]
     Indication: RHEUMATOID ARTHRITIS
     Dosage: DATE OF THE LAST DOSE RECIEVED PRIOR TO THE ADVERSE EVENT: 10/DEC/2010
     Route: 065
     Dates: start: 20080305
  2. CYCLOSPORINE [Concomitant]

REACTIONS (2)
  - Myocardial infarction [Recovered/Resolved]
  - Arrhythmia [Recovered/Resolved]
